FAERS Safety Report 5590886-X (Version None)
Quarter: 2007Q4

REPORT INFORMATION
  Report Type: 
  Country: None (occurrence: None)
  Receive Date: 20071213
  Receipt Date: 20070718
  Transmission Date: 20080405
  Serious: Yes (Other)
  Sender: FDA-Public Use
  Company Number: 430029M07USA

PATIENT
  Age: 64 Year
  Sex: Male

DRUGS (3)
  1. NOVANTRONE [Suspect]
     Indication: PROSTATE CANCER
     Dosage: 22 MG
     Dates: start: 20070207, end: 20070207
  2. IXABEPILONE (IXABEPILONE) [Suspect]
     Indication: PROSTATE CANCER
     Dosage: 55 MG
     Dates: start: 20070207, end: 20070207
  3. PREDNISONE [Suspect]
     Indication: PROSTATE CANCER
     Dosage: 210 MG
     Dates: start: 20070202, end: 20070202

REACTIONS (1)
  - NEUTROPENIA [None]
